FAERS Safety Report 6667926-X (Version None)
Quarter: 2010Q2

REPORT INFORMATION
  Report Type: 
  Country: None (occurrence: None)
  Receive Date: 20100401
  Receipt Date: 20100311
  Transmission Date: 20101027
  Serious: Yes (Other)
  Sender: FDA-Public Use
  Company Number: JP-SOLVAY-00310000968

PATIENT

DRUGS (1)
  1. LUVOX [Suspect]
     Indication: DEPRESSION
     Dosage: 25 MILLIGRAM(S) ORAL
     Route: 048

REACTIONS (1)
  - CONVULSION [None]
